FAERS Safety Report 24899347 (Version 1)
Quarter: 2025Q1

REPORT INFORMATION
  Report Type: Spontaneous
  Country: US (occurrence: US)
  Receive Date: 20250129
  Receipt Date: 20250129
  Transmission Date: 20250408
  Serious: Yes (Other)
  Sender: CHEPLAPHARM
  Company Number: US-CHEPLA-2025001127

PATIENT
  Sex: Female

DRUGS (13)
  1. VALGANCICLOVIR [Suspect]
     Active Substance: VALGANCICLOVIR
     Indication: Antiviral prophylaxis
     Dosage: ONGOING?DAILY DOSE: 450 MILLIGRAM
     Dates: start: 2018
  2. MYFORTIC [Suspect]
     Active Substance: MYCOPHENOLATE SODIUM
     Indication: Liver transplant
     Route: 048
     Dates: start: 2022, end: 20240328
  3. VITAMINS [Concomitant]
     Active Substance: VITAMINS
     Dosage: DAILY DOSE: 1 DOSAGE FORM
  4. MAGNESIUM [Concomitant]
     Active Substance: MAGNESIUM
  5. KEFLEX [Concomitant]
     Active Substance: CEPHALEXIN
     Indication: Urinary tract infection
     Dates: start: 20240606, end: 20240613
  6. CALCIUM\VITAMIN D [Concomitant]
     Active Substance: CALCIUM\VITAMIN D
     Indication: Liver transplant
     Dates: start: 2018
  7. CALCIUM\VITAMIN D [Concomitant]
     Active Substance: CALCIUM\VITAMIN D
     Indication: Bone density abnormal
     Dates: start: 2018
  8. CLOTRIMAZOLE [Concomitant]
     Active Substance: CLOTRIMAZOLE
     Indication: Candida infection
     Dates: start: 2023
  9. DAPSONE [Concomitant]
     Active Substance: DAPSONE
     Indication: Pneumocystis jirovecii pneumonia
     Dosage: ONGOING
     Dates: start: 2023
  10. PANTOPRAZOLE [Concomitant]
     Active Substance: PANTOPRAZOLE
     Indication: Gastric ulcer
     Dosage: ONGOING?DAILY DOSE: 40 MILLIGRAM
     Dates: start: 2018
  11. PREDNISONE [Concomitant]
     Active Substance: PREDNISONE
     Indication: Transplant rejection
     Dosage: ONGOING?DAILY DOSE: 30 MILLIGRAM
     Dates: start: 2018
  12. SIROLIMUS [Concomitant]
     Active Substance: SIROLIMUS
     Indication: Transplant rejection
     Dosage: ONGOING?DAILY DOSE: 2 MILLIGRAM
     Dates: start: 2020
  13. TACROLIMUS [Concomitant]
     Active Substance: TACROLIMUS
     Indication: Prophylaxis against transplant rejection
     Dates: start: 2018

REACTIONS (4)
  - Premature baby [Unknown]
  - Thrombocytopenia [Unknown]
  - Cholestasis [Unknown]
  - Foetal growth restriction [Unknown]

NARRATIVE: CASE EVENT DATE: 20241109
